FAERS Safety Report 21143532 (Version 1)
Quarter: 2022Q3

REPORT INFORMATION
  Report Type: Report from Study
  Country: US (occurrence: US)
  Receive Date: 20220728
  Receipt Date: 20220728
  Transmission Date: 20221027
  Serious: Yes (Other)
  Sender: FDA-Public Use
  Company Number: US-GILEAD-2022-0591430

PATIENT
  Age: 70 Year

DRUGS (1)
  1. BICTEGRAVIR\EMTRICITABINE\TENOFOVIR ALAFENAMIDE [Suspect]
     Active Substance: BICTEGRAVIR\EMTRICITABINE\TENOFOVIR ALAFENAMIDE
     Indication: HIV infection
     Dosage: 1 DOSAGE FORM, QD
     Route: 048
     Dates: start: 202203

REACTIONS (3)
  - Diabetes mellitus [Not Recovered/Not Resolved]
  - Rash papular [Not Recovered/Not Resolved]
  - Blood lactic acid increased [Not Recovered/Not Resolved]

NARRATIVE: CASE EVENT DATE: 20220301
